FAERS Safety Report 24054524 (Version 1)
Quarter: 2024Q3

REPORT INFORMATION
  Report Type: Spontaneous
  Country: ES (occurrence: ES)
  Receive Date: 20240705
  Receipt Date: 20240705
  Transmission Date: 20241016
  Serious: Yes (Death, Life-Threatening, Hospitalization, Other)
  Sender: Unknown Manufacturer
  Company Number: ES-862174955-ML2024-03709

PATIENT
  Age: 54 Year
  Sex: Female

DRUGS (7)
  1. AMOXICILLIN [Suspect]
     Active Substance: AMOXICILLIN
     Indication: Product used for unknown indication
  2. DICLOFENAC [Suspect]
     Active Substance: DICLOFENAC
     Indication: Product used for unknown indication
  3. ACETAMINOPHEN [Suspect]
     Active Substance: ACETAMINOPHEN
     Indication: Product used for unknown indication
  4. LORMETAZEPAM [Suspect]
     Active Substance: LORMETAZEPAM
     Indication: Product used for unknown indication
  5. DEXKETOPROFEN TROMETAMOL [Suspect]
     Active Substance: DEXKETOPROFEN TROMETAMOL
     Indication: Product used for unknown indication
  6. CLORAZEPATE DIPOTASSIUM [Suspect]
     Active Substance: CLORAZEPATE DIPOTASSIUM
     Indication: Product used for unknown indication
  7. ALCOHOL [Suspect]
     Active Substance: ALCOHOL
     Indication: Product used for unknown indication

REACTIONS (11)
  - Toxicity to various agents [Fatal]
  - Tachypnoea [Fatal]
  - Poor peripheral circulation [Fatal]
  - Dehydration [Fatal]
  - Metabolic acidosis [Fatal]
  - Coagulopathy [Fatal]
  - Shock [Fatal]
  - Acute kidney injury [Fatal]
  - Pancreatic failure [Fatal]
  - Hyperglycaemia [Fatal]
  - Acute hepatic failure [Fatal]
